FAERS Safety Report 22040150 (Version 4)
Quarter: 2023Q2

REPORT INFORMATION
  Report Type: Spontaneous
  Country: US (occurrence: US)
  Receive Date: 20230227
  Receipt Date: 20230607
  Transmission Date: 20230722
  Serious: No
  Sender: FDA-Public Use
  Company Number: US-002147023-NVSC2023US044807

PATIENT
  Sex: Female

DRUGS (1)
  1. LEQVIO [Suspect]
     Active Substance: INCLISIRAN SODIUM
     Indication: Product used for unknown indication
     Dosage: UNK, LEQVIO PREFILLED SYRINGE 284 MG/1.5 ML
     Route: 065

REACTIONS (3)
  - Injection site erythema [Unknown]
  - Application site pruritus [Unknown]
  - Injection site discomfort [Unknown]
